FAERS Safety Report 8860650 (Version 1)
Quarter: 2012Q4

REPORT INFORMATION
  Report Type: 
  Country: US (occurrence: US)
  Receive Date: 20121025
  Receipt Date: 20121025
  Transmission Date: 20130627
  Serious: No
  Sender: FDA-Public Use
  Company Number: US-ASTRAZENECA-2011SE77936

PATIENT
  Sex: Male

DRUGS (4)
  1. METOPROLOL [Suspect]
     Indication: ATRIOVENTRICULAR BLOCK
     Route: 048
  2. CRESTOR [Suspect]
     Indication: BLOOD CHOLESTEROL ABNORMAL
     Route: 048
  3. CRESTOR [Suspect]
     Indication: BLOOD TRIGLYCERIDES ABNORMAL
     Route: 048
  4. NIACIN OTC [Concomitant]

REACTIONS (1)
  - High density lipoprotein decreased [Unknown]
